FAERS Safety Report 6961796-8 (Version None)
Quarter: 2010Q3

REPORT INFORMATION
  Report Type: 
  Country: None (occurrence: None)
  Receive Date: 20100901
  Receipt Date: 20100826
  Transmission Date: 20110219
  Serious: Yes (Other)
  Sender: FDA-Public Use
  Company Number: FR-AMGEN-QUU434977

PATIENT
  Sex: Female

DRUGS (1)
  1. ENBREL [Suspect]
     Indication: RHEUMATOID ARTHRITIS
     Route: 058
     Dates: start: 20100401, end: 20100801

REACTIONS (6)
  - APHTHOUS STOMATITIS [None]
  - PHOTOSENSITIVITY REACTION [None]
  - PYELONEPHRITIS [None]
  - RASH PRURITIC [None]
  - RASH VESICULAR [None]
  - SYSTEMIC LUPUS ERYTHEMATOSUS [None]
